FAERS Safety Report 9009747 (Version 1)
Quarter: 2013Q1

REPORT INFORMATION
  Report Type: Spontaneous
  Country: AU (occurrence: AU)
  Receive Date: 20130110
  Receipt Date: 20130110
  Transmission Date: 20140127
  Serious: Yes (Other)
  Sender: FDA-Public Use
  Company Number: AU-PFIZER INC-2013007615

PATIENT
  Sex: Female

DRUGS (1)
  1. LYRICA [Suspect]
     Dosage: 75 MG, UNK

REACTIONS (5)
  - Paralysis [Unknown]
  - Hypokinesia [Unknown]
  - Bradyphrenia [Unknown]
  - Dysuria [Unknown]
  - Feeling abnormal [Unknown]
